FAERS Safety Report 16465459 (Version 2)
Quarter: 2019Q3

REPORT INFORMATION
  Report Type: Spontaneous
  Country: FR (occurrence: FR)
  Receive Date: 20190621
  Receipt Date: 20190729
  Transmission Date: 20191004
  Serious: Yes (Other)
  Sender: FDA-Public Use
  Company Number: FR-GRUNENTHAL-2019-15099

PATIENT
  Sex: Female

DRUGS (1)
  1. QUTENZA [Suspect]
     Active Substance: CAPSAICIN
     Indication: NEURALGIA
     Dosage: UNK
     Route: 003
     Dates: start: 20190521

REACTIONS (4)
  - Application site pain [Recovering/Resolving]
  - Application site burn [Recovering/Resolving]
  - Application site erythema [Recovering/Resolving]
  - Application site vesicles [Recovered/Resolved]
